APPROVED DRUG PRODUCT: ALMOTRIPTAN MALATE
Active Ingredient: ALMOTRIPTAN MALATE
Strength: EQ 12.5MG BASE
Dosage Form/Route: TABLET;ORAL
Application: A205171 | Product #002 | TE Code: AB
Applicant: MYLAN PHARMACEUTICALS INC
Approved: Nov 9, 2015 | RLD: No | RS: No | Type: RX